FAERS Safety Report 9513447 (Version 1)
Quarter: 2013Q3

REPORT INFORMATION
  Report Type: Spontaneous
  Country: US (occurrence: US)
  Receive Date: 20130910
  Receipt Date: 20130910
  Transmission Date: 20140515
  Serious: No
  Sender: FDA-Public Use
  Company Number: US-TARO-2013P1000517

PATIENT
  Age: 82 Year
  Sex: Female
  Weight: 71.67 kg

DRUGS (11)
  1. WARFARIN SODIUM TABLETS USP 5MG [Suspect]
     Route: 048
     Dates: start: 201212, end: 20130106
  2. WARFARIN SODIUM TABLETS USP 5MG [Suspect]
     Route: 048
     Dates: start: 20130107
  3. WARFARIN SODIUM TABLETS USP 5MG [Suspect]
     Route: 048
     Dates: start: 20130107
  4. LISINOPRIL [Concomitant]
  5. METOPROLOL [Concomitant]
  6. CALCIUM [Concomitant]
  7. VITAMIN D [Concomitant]
  8. NITROFURANTOIN [Concomitant]
  9. FLUOCINONIDE CREAM [Concomitant]
     Route: 061
  10. BIOTIN [Concomitant]
  11. TERBINAFINE [Concomitant]
     Dates: start: 201301

REACTIONS (2)
  - International normalised ratio decreased [Unknown]
  - International normalised ratio increased [Not Recovered/Not Resolved]
